FAERS Safety Report 17226679 (Version 1)
Quarter: 2020Q1

REPORT INFORMATION
  Report Type: Spontaneous
  Country: CA (occurrence: CA)
  Receive Date: 20200102
  Receipt Date: 20200102
  Transmission Date: 20200409
  Serious: Yes (Death, Other)
  Sender: FDA-Public Use
  Company Number: CA-AUROBINDO-AUR-APL-2019-108297

PATIENT
  Age: 51 Year
  Sex: Male

DRUGS (9)
  1. FOSCARNET [Suspect]
     Active Substance: FOSCARNET
     Indication: CYTOMEGALOVIRUS SYNDROME
     Dosage: 180 MILLIGRAM/KILOGRAM, ONCE A DAY
     Route: 042
  2. TACROLIMUS. [Suspect]
     Active Substance: TACROLIMUS
     Indication: IMMUNOSUPPRESSION
     Dosage: UNK
     Route: 065
  3. VALGANCICLOVIR. [Suspect]
     Active Substance: VALGANCICLOVIR
     Indication: CYTOMEGALOVIRUS TEST POSITIVE
     Dosage: UNK
     Route: 065
  4. PREDNISONE. [Suspect]
     Active Substance: PREDNISONE
     Indication: IMMUNOSUPPRESSION
     Dosage: 15 MILLIGRAM, ONCE A DAY
     Route: 065
  5. LETERMOVIR [Concomitant]
     Active Substance: LETERMOVIR
     Indication: CYTOMEGALOVIRUS SYNDROME
     Dosage: 240 MILLIGRAM, ONCE A DAY
     Route: 042
  6. GANCICLOVIR INJECTION [Suspect]
     Active Substance: GANCICLOVIR
     Indication: CYTOMEGALOVIRUS SYNDROME
     Dosage: 5 MILLIGRAM/KILOGRAM, TWO TIMES A DAY
     Route: 042
  7. CICLOSPORIN [Suspect]
     Active Substance: CYCLOSPORINE
     Indication: IMMUNOSUPPRESSION
     Dosage: UNK
     Route: 065
  8. METHYLPREDNISOLONE. [Suspect]
     Active Substance: METHYLPREDNISOLONE
     Indication: IMMUNOSUPPRESSION
     Dosage: 10 MILLIGRAM, ONCE A DAY
     Route: 042
  9. MYCOPHENOLIC ACID. [Suspect]
     Active Substance: MYCOPHENOLIC ACID
     Indication: IMMUNOSUPPRESSION
     Dosage: 1080 MILLIGRAM, ONCE A DAY
     Route: 065

REACTIONS (6)
  - Acute kidney injury [Fatal]
  - Pneumonia pseudomonal [Fatal]
  - Dyspnoea [Fatal]
  - Hyperkalaemia [Fatal]
  - Leukopenia [Fatal]
  - Bacterial sepsis [Fatal]
